FAERS Safety Report 24239363 (Version 1)
Quarter: 2024Q3

REPORT INFORMATION
  Report Type: Spontaneous
  Country: US (occurrence: None)
  Receive Date: 20240822
  Receipt Date: 20240822
  Transmission Date: 20241017
  Serious: No
  Sender: Public
  Company Number: None

PATIENT
  Age: 52 Year
  Sex: Female
  Weight: 96.75 kg

DRUGS (3)
  1. PAXLOVID [Suspect]
     Active Substance: NIRMATRELVIR\RITONAVIR
     Indication: SARS-CoV-2 test positive
     Dosage: OTHER QUANTITY : 3 CAPSULE(S);?FREQUENCY : TWICE A DAY;?
     Route: 048
     Dates: start: 20240816, end: 20240820
  2. PAXLOVID [Suspect]
     Active Substance: NIRMATRELVIR\RITONAVIR
     Indication: Type 2 diabetes mellitus
  3. RISPERIDONE [Suspect]
     Active Substance: RISPERIDONE
     Indication: Thinking abnormal
     Dosage: OTHER QUANTITY : 1 TABLET(S);?FREQUENCY : DAILY;?
     Route: 048
     Dates: start: 20240618, end: 20240822

REACTIONS (7)
  - Dyskinesia [None]
  - Muscle twitching [None]
  - Apraxia [None]
  - Dyskinesia [None]
  - Balance disorder [None]
  - Dyskinesia [None]
  - Drug interaction [None]

NARRATIVE: CASE EVENT DATE: 20240816
